FAERS Safety Report 4363725-2 (Version None)
Quarter: 2004Q2

REPORT INFORMATION
  Report Type: 
  Country: None (occurrence: None)
  Receive Date: 20040521
  Receipt Date: 20040521
  Transmission Date: 20050107
  Serious: Yes (Other)
  Sender: FDA-Public Use
  Company Number: None

PATIENT
  Age: 29 Year
  Sex: Male
  Weight: 94.3482 kg

DRUGS (1)
  1. LEVAQUIN [Suspect]
     Indication: URETHRITIS
     Dosage: 1 PILL DAI ORAL
     Route: 048
     Dates: start: 20040510, end: 20040519

REACTIONS (5)
  - ARTHRALGIA [None]
  - PAIN [None]
  - PAIN IN EXTREMITY [None]
  - PAIN OF SKIN [None]
  - TENDON DISORDER [None]
